FAERS Safety Report 8905268 (Version 1)
Quarter: 2012Q4

REPORT INFORMATION
  Report Type: 
  Country: CA (occurrence: CA)
  Receive Date: 20121111
  Receipt Date: 20121111
  Transmission Date: 20130627
  Serious: Yes (Other)
  Sender: FDA-Public Use
  Company Number: PHMT2006CA01132

PATIENT
  Age: 60 Year
  Sex: Female

DRUGS (10)
  1. SANDOSTATIN [Suspect]
     Indication: CARCINOID TUMOUR
     Dosage: 20 mg, every 4 weeks
     Dates: start: 20051107
  2. SANDOSTATIN [Suspect]
     Dosage: 30 mg, UNK
     Dates: start: 20050425
  3. SANDOSTATIN LAR [Suspect]
     Dosage: 20 mg, every 4 weeks
  4. SANDOSTATINA LAR [Suspect]
     Dosage: 40 mg, every 4 weeks
     Route: 030
  5. SANDOSTATINE LAR [Suspect]
     Dosage: 30 mg, every 4 weeks
     Route: 030
  6. TENORMIN [Concomitant]
  7. AVAPRO [Concomitant]
  8. HYDROCHLOROTHIAZIDE [Concomitant]
  9. TYLENOL W/CODEINE NO. 3 [Concomitant]
  10. METFORMIN [Concomitant]
     Dates: end: 20060119

REACTIONS (19)
  - Weight decreased [Not Recovered/Not Resolved]
  - Hyperglycaemia [Unknown]
  - Renal disorder [Unknown]
  - Chest wall mass [Unknown]
  - Dysgeusia [Unknown]
  - Depression [Unknown]
  - Injection site reaction [Unknown]
  - Anxiety [Unknown]
  - Blood pressure diastolic decreased [Unknown]
  - Pruritus [Unknown]
  - Diarrhoea [Not Recovered/Not Resolved]
  - Fatigue [Not Recovered/Not Resolved]
  - Bradycardia [Unknown]
  - Constipation [Unknown]
  - Abdominal distension [Unknown]
  - Injection site pain [Unknown]
  - Nausea [Unknown]
  - Stress [Unknown]
  - Asthenia [Unknown]
